FAERS Safety Report 20801052 (Version 1)
Quarter: 2022Q2

REPORT INFORMATION
  Report Type: Spontaneous
  Country: CN (occurrence: CN)
  Receive Date: 20220509
  Receipt Date: 20220509
  Transmission Date: 20220721
  Serious: Yes (Hospitalization)
  Sender: FDA-Public Use
  Company Number: CN-NOVARTISPH-NVSC2022CN104137

PATIENT
  Age: 36 Year
  Sex: Male
  Weight: 82 kg

DRUGS (3)
  1. VORICONAZOLE [Suspect]
     Active Substance: VORICONAZOLE
     Indication: Pneumonia
     Dosage: 200 MG, BID
     Route: 048
     Dates: start: 20220331, end: 20220428
  2. ARSENIC TRIOXIDE [Suspect]
     Active Substance: ARSENIC TRIOXIDE
     Indication: Acute leukaemia
     Dosage: 10 MG, QD
     Route: 041
     Dates: start: 20220322, end: 20220421
  3. SODIUM CHLORIDE [Suspect]
     Active Substance: SODIUM CHLORIDE
     Indication: Acute leukaemia
     Dosage: 10 MG, QD
     Route: 041
     Dates: start: 20220322, end: 20220421

REACTIONS (1)
  - Hepatic function abnormal [Unknown]

NARRATIVE: CASE EVENT DATE: 20220425
